FAERS Safety Report 8874727 (Version 8)
Quarter: 2013Q4

REPORT INFORMATION
  Report Type: Report from Study
  Country: CA (occurrence: CA)
  Receive Date: 20121030
  Receipt Date: 20131028
  Transmission Date: 20140711
  Serious: Yes (Disabling, Other)
  Sender: FDA-Public Use
  Company Number: CA-ROCHE-1136296

PATIENT
  Age: 20 Year
  Sex: Female
  Weight: 70 kg

DRUGS (16)
  1. ACTEMRA [Suspect]
     Indication: STILL^S DISEASE ADULT ONSET
     Route: 042
     Dates: start: 20111128
  2. ACTEMRA [Suspect]
     Indication: OFF LABEL USE
     Route: 042
     Dates: start: 20120109
  3. ACTEMRA [Suspect]
     Route: 065
     Dates: start: 20120822
  4. ACTEMRA [Suspect]
     Route: 042
     Dates: start: 20120308
  5. ACTEMRA [Suspect]
     Route: 042
     Dates: start: 20120724
  6. ACTEMRA [Suspect]
     Route: 042
     Dates: start: 20120510
  7. ACTEMRA [Suspect]
     Route: 042
     Dates: start: 20120629
  8. ACTEMRA [Suspect]
     Route: 042
     Dates: start: 20121025
  9. ACTEMRA [Suspect]
     Route: 042
     Dates: start: 20130801
  10. ACTEMRA [Suspect]
     Route: 042
     Dates: start: 20130916
  11. PREDNISONE [Concomitant]
  12. RISEDRONATE [Concomitant]
  13. METHOTREXATE [Concomitant]
  14. FOLIC ACID [Concomitant]
  15. PANTOLOC [Concomitant]
  16. PLAQUENIL [Concomitant]

REACTIONS (5)
  - Hip fracture [Recovering/Resolving]
  - Hypotension [Not Recovered/Not Resolved]
  - Cough [Recovered/Resolved]
  - Nasopharyngitis [Recovered/Resolved]
  - Hypotension [Not Recovered/Not Resolved]
